FAERS Safety Report 7690958-X (Version None)
Quarter: 2011Q3

REPORT INFORMATION
  Report Type: 
  Country: None (occurrence: None)
  Receive Date: 20110812
  Receipt Date: 20110729
  Transmission Date: 20111222
  Serious: Yes (Hospitalization)
  Sender: FDA-Public Use
  Company Number: IPC201107-002789

PATIENT
  Age: 34 Year
  Sex: Male

DRUGS (1)
  1. METFORMIN HYDROCHLORIDE [Suspect]
     Dosage: 170 TABLETS (144500 MG),ORAL
     Route: 048

REACTIONS (8)
  - HYPOGLYCAEMIA [None]
  - INTENTIONAL OVERDOSE [None]
  - HEART RATE INCREASED [None]
  - HAEMODIALYSIS [None]
  - LACTIC ACIDOSIS [None]
  - METABOLIC ACIDOSIS [None]
  - RENAL FAILURE ACUTE [None]
  - SUICIDE ATTEMPT [None]
